FAERS Safety Report 5501474-5 (Version None)
Quarter: 2007Q4

REPORT INFORMATION
  Report Type: 
  Country: None (occurrence: None)
  Receive Date: 20071023
  Receipt Date: 20070201
  Transmission Date: 20080405
  Serious: Yes (Other)
  Sender: FDA-Public Use
  Company Number: 34038

PATIENT
  Age: 60 Year
  Sex: Female

DRUGS (1)
  1. CYTARABINE [Suspect]
     Indication: ACUTE LYMPHOCYTIC LEUKAEMIA
     Dosage: 7G/IV
     Route: 042
     Dates: start: 20061101

REACTIONS (3)
  - ATAXIA [None]
  - DYSARTHRIA [None]
  - NEUROTOXICITY [None]
